FAERS Safety Report 20923761 (Version 1)
Quarter: 2022Q2

REPORT INFORMATION
  Report Type: Spontaneous
  Country: US (occurrence: None)
  Receive Date: 20220606
  Receipt Date: 20220606
  Transmission Date: 20220721
  Serious: No
  Sender: FDA-Public Use
  Company Number: None

PATIENT
  Age: 85 Year
  Sex: Female
  Weight: 52.3 kg

DRUGS (15)
  1. CYCLOPHOSPHAMIDE [Suspect]
     Active Substance: CYCLOPHOSPHAMIDE
     Indication: Ovarian cancer
     Dosage: 50 MG DAILY ORAL
     Route: 048
  2. CRESTOR [Concomitant]
     Active Substance: ROSUVASTATIN CALCIUM
  3. DEXAMETHASONE [Concomitant]
     Active Substance: DEXAMETHASONE
  4. DIALYVITE VITAMIN D3 [Concomitant]
  5. ELIQUIS [Concomitant]
     Active Substance: APIXABAN
  6. LIDOCAINE-PRILOCAINE EXTERNAL CREAM [Concomitant]
  7. LORAZEPAM [Concomitant]
     Active Substance: LORAZEPAM
  8. MIRALAX [Concomitant]
     Active Substance: POLYETHYLENE GLYCOL 3350
  9. VITAMINS [Concomitant]
     Active Substance: VITAMINS
  10. ONDANSETRON [Concomitant]
     Active Substance: ONDANSETRON
  11. PRILOSEC OTC DELAYED RELEASE TABLET [Concomitant]
  12. PROCHLORPERAZINE MALEATE [Concomitant]
     Active Substance: PROCHLORPERAZINE MALEATE
  13. PROBIOTICS NOS [Concomitant]
     Active Substance: PROBIOTICS NOS
  14. FISH OIL [Concomitant]
     Active Substance: FISH OIL
  15. TRAMADOL HYDROCHLORIDE [Concomitant]
     Active Substance: TRAMADOL HYDROCHLORIDE

REACTIONS (1)
  - Cardiac failure chronic [None]

NARRATIVE: CASE EVENT DATE: 20220528
